FAERS Safety Report 7513289-7 (Version None)
Quarter: 2011Q2

REPORT INFORMATION
  Report Type: 
  Country: None (occurrence: None)
  Receive Date: 20110525
  Receipt Date: 20110525
  Transmission Date: 20111010
  Serious: Yes (Hospitalization)
  Sender: FDA-Public Use
  Company Number: None

PATIENT
  Age: 56 Year
  Sex: Female
  Weight: 59.8748 kg

DRUGS (1)
  1. COMBIPATCH [Suspect]
     Indication: HORMONE REPLACEMENT THERAPY
     Dosage: 1 PATCH 2X WK. 2X WK. TRANSDERMAL
     Route: 062
     Dates: start: 20110427

REACTIONS (8)
  - HEART RATE INCREASED [None]
  - NAUSEA [None]
  - DYSPNOEA [None]
  - VOMITING [None]
  - HYPOTENSION [None]
  - HYPERHIDROSIS [None]
  - DIZZINESS [None]
  - CHEST PAIN [None]
